FAERS Safety Report 4845280-3 (Version None)
Quarter: 2005Q4

REPORT INFORMATION
  Report Type: 
  Country: None (occurrence: None)
  Receive Date: 20051125
  Receipt Date: 20051115
  Transmission Date: 20060501
  Serious: Yes (Hospitalization, Other)
  Sender: FDA-Public Use
  Company Number: 2005157203

PATIENT
  Age: 54 Year
  Sex: Female
  Weight: 102.0593 kg

DRUGS (4)
  1. DAYPRO [Suspect]
     Indication: JOINT INJURY
     Dates: start: 19960101, end: 19960901
  2. CELEBREX [Suspect]
     Indication: JOINT INJURY
     Dosage: 200 MG (200 MG, 1 IN 1D)
     Dates: start: 19960901
  3. BEXTRA [Suspect]
     Indication: JOINT INJURY
     Dosage: 10 MG (10 MG, 1IN 1D)
  4. GLUCOSAMINE (GLUCOSAMINE) [Suspect]
     Indication: JOINT INJURY

REACTIONS (10)
  - ARTHRALGIA [None]
  - BLOOD GLUCOSE INCREASED [None]
  - CALCINOSIS [None]
  - DIZZINESS [None]
  - LIGAMENT DISORDER [None]
  - MALAISE [None]
  - NASAL CONGESTION [None]
  - SEASONAL ALLERGY [None]
  - STOMACH DISCOMFORT [None]
  - SWELLING [None]
